FAERS Safety Report 9230989 (Version 32)
Quarter: 2017Q3

REPORT INFORMATION
  Report Type: Report from Study
  Country: CA (occurrence: CA)
  Receive Date: 20130415
  Receipt Date: 20170707
  Transmission Date: 20171128
  Serious: Yes (Other)
  Sender: FDA-Public Use
  Company Number: CA-ROCHE-1173983

PATIENT
  Age: 47 Year
  Sex: Female
  Weight: 83 kg

DRUGS (20)
  1. ACTEMRA [Suspect]
     Active Substance: TOCILIZUMAB
     Route: 042
     Dates: start: 20151217
  2. OXYCODONE [Suspect]
     Active Substance: OXYCODONE
     Indication: PAIN
     Route: 065
  3. HYDROXYCHLOROQUINE [Concomitant]
     Active Substance: HYDROXYCHLOROQUINE
     Route: 065
  4. RELAFEN [Concomitant]
     Active Substance: NABUMETONE
     Route: 065
  5. ELAVIL [Concomitant]
     Active Substance: AMITRIPTYLINE HYDROCHLORIDE
     Route: 065
  6. ACTEMRA [Suspect]
     Active Substance: TOCILIZUMAB
     Indication: RHEUMATOID ARTHRITIS
     Route: 042
     Dates: start: 20121121
  7. ACTONEL [Concomitant]
     Active Substance: RISEDRONATE SODIUM
     Route: 065
  8. VENTOLIN [Concomitant]
     Active Substance: ALBUTEROL SULFATE
     Route: 065
  9. VITAMIN B12 [Concomitant]
     Active Substance: CYANOCOBALAMIN
     Route: 065
  10. ACTEMRA [Suspect]
     Active Substance: TOCILIZUMAB
     Route: 042
     Dates: start: 20130601
  11. PREDNISONE. [Concomitant]
     Active Substance: PREDNISONE
     Route: 065
  12. PARIET [Concomitant]
     Active Substance: RABEPRAZOLE SODIUM
     Route: 065
  13. DILAUDID [Concomitant]
     Active Substance: HYDROMORPHONE HYDROCHLORIDE
  14. TYLENOL WITH CODEINE [Suspect]
     Active Substance: ACETAMINOPHEN\CODEINE PHOSPHATE
     Indication: PAIN
     Route: 065
  15. ACTEMRA [Suspect]
     Active Substance: TOCILIZUMAB
     Route: 042
     Dates: start: 20131023
  16. ACTEMRA [Suspect]
     Active Substance: TOCILIZUMAB
     Route: 042
     Dates: start: 20160809, end: 20170622
  17. SYNTHROID [Concomitant]
     Active Substance: LEVOTHYROXINE SODIUM
     Route: 048
     Dates: start: 201503
  18. ADVAIR HFA [Concomitant]
     Active Substance: FLUTICASONE PROPIONATE\SALMETEROL XINAFOATE
     Route: 065
  19. SYNTHROID [Concomitant]
     Active Substance: LEVOTHYROXINE SODIUM
     Route: 065
     Dates: start: 20141029
  20. METHOTREXATE. [Suspect]
     Active Substance: METHOTREXATE
     Indication: PAIN
     Route: 065

REACTIONS (37)
  - Oropharyngeal pain [Not Recovered/Not Resolved]
  - Nasopharyngitis [Not Recovered/Not Resolved]
  - Blood pressure systolic increased [Unknown]
  - Drug ineffective [Unknown]
  - Gastrointestinal haemorrhage [Unknown]
  - Nail infection [Recovered/Resolved]
  - Infusion related reaction [Unknown]
  - Weight decreased [Unknown]
  - Blood pressure systolic increased [Unknown]
  - Cough [Not Recovered/Not Resolved]
  - Drug effect decreased [Unknown]
  - Inflammation [Not Recovered/Not Resolved]
  - Fungal infection [Recovered/Resolved]
  - Weight increased [Unknown]
  - Blood pressure increased [Unknown]
  - Diarrhoea [Not Recovered/Not Resolved]
  - Rubella [Not Recovered/Not Resolved]
  - Limb mass [Recovered/Resolved]
  - Pyrexia [Not Recovered/Not Resolved]
  - Cystitis [Unknown]
  - Basal cell carcinoma [Recovering/Resolving]
  - Anaemia [Not Recovered/Not Resolved]
  - Palpitations [Unknown]
  - Liver function test increased [Not Recovered/Not Resolved]
  - Hypertension [Unknown]
  - Cystitis [Not Recovered/Not Resolved]
  - Rash [Not Recovered/Not Resolved]
  - Blood cholesterol increased [Unknown]
  - Heart rate increased [Recovering/Resolving]
  - Urinary tract infection [Not Recovered/Not Resolved]
  - Hypothyroidism [Not Recovered/Not Resolved]
  - Basal cell carcinoma [Not Recovered/Not Resolved]
  - Lung infection [Unknown]
  - Pharyngitis [Recovered/Resolved]
  - Blood pressure increased [Unknown]
  - Hypersensitivity [Not Recovered/Not Resolved]
  - Sinusitis [Not Recovered/Not Resolved]

NARRATIVE: CASE EVENT DATE: 2013
